FAERS Safety Report 6431056-2 (Version None)
Quarter: 2009Q4

REPORT INFORMATION
  Report Type: 
  Country: None (occurrence: None)
  Receive Date: 20091106
  Receipt Date: 20091030
  Transmission Date: 20100525
  Serious: Yes (Death)
  Sender: FDA-Public Use
  Company Number: A0814257A

PATIENT
  Age: 25 Year
  Sex: Female
  Weight: 121.6 kg

DRUGS (1)
  1. ZANAMIVIR [Suspect]
     Dosage: 600MG TWICE PER DAY
     Route: 042
     Dates: start: 20091023, end: 20091029

REACTIONS (1)
  - CARDIAC ARREST [None]
